FAERS Safety Report 10168093 (Version 4)
Quarter: 2015Q1

REPORT INFORMATION
  Report Type: Report from Study
  Country: US (occurrence: US)
  Receive Date: 20140512
  Receipt Date: 20150203
  Transmission Date: 20150720
  Serious: Yes (Hospitalization)
  Sender: FDA-Public Use
  Company Number: US-ACTELION-A-US2014-97754

PATIENT
  Age: 85 Year
  Sex: Female

DRUGS (1)
  1. TRACLEER [Suspect]
     Active Substance: BOSENTAN\BOSENTAN MONOHYDRATE
     Indication: PULMONARY ARTERIAL HYPERTENSION
     Dosage: 62.5 MG, BID
     Route: 048

REACTIONS (5)
  - Cerebrovascular accident [Unknown]
  - Seizure [Recovering/Resolving]
  - Myocardial infarction [Unknown]
  - Cardiac failure [Unknown]
  - Aphasia [Not Recovered/Not Resolved]
